FAERS Safety Report 11241660 (Version 2)
Quarter: 2015Q4

REPORT INFORMATION
  Report Type: Spontaneous
  Country: US (occurrence: US)
  Receive Date: 20150706
  Receipt Date: 20151204
  Transmission Date: 20160304
  Serious: Yes (Hospitalization, Other)
  Sender: FDA-Public Use
  Company Number: US-ELI_LILLY_AND_COMPANY-US201506010189

PATIENT
  Sex: Male
  Weight: 94.79 kg

DRUGS (5)
  1. LANTUS [Concomitant]
     Active Substance: INSULIN GLARGINE
  2. VITAMIN B [Concomitant]
     Active Substance: VITAMIN B
  3. HUMALOG [Suspect]
     Active Substance: INSULIN LISPRO
     Indication: TYPE 2 DIABETES MELLITUS
     Dosage: 6-8 U, TID
     Route: 065
  4. HUMALOG [Suspect]
     Active Substance: INSULIN LISPRO
  5. TRULICITY [Concomitant]
     Active Substance: DULAGLUTIDE
     Dosage: 0.75 MG, WEEKLY (1/W)

REACTIONS (7)
  - Renal disorder [Recovered/Resolved]
  - Blood glucose increased [Unknown]
  - Blood glucose abnormal [Recovering/Resolving]
  - Weight increased [Recovering/Resolving]
  - Gangrene [Recovered/Resolved]
  - Infection [Unknown]
  - Infection [Unknown]

NARRATIVE: CASE EVENT DATE: 2013
